FAERS Safety Report 8770636 (Version 1)
Quarter: 2012Q4

REPORT INFORMATION
  Report Type: 
  Country: US (occurrence: US)
  Receive Date: 20120906
  Receipt Date: 20120906
  Transmission Date: 20130627
  Serious: Yes (Hospitalization)
  Sender: FDA-Public Use
  Company Number: US-BAYER-2012-091477

PATIENT
  Age: 50 Year
  Sex: Female

DRUGS (5)
  1. YASMIN [Suspect]
     Indication: DYSFUNCTIONAL UTERINE BLEEDING
  2. YASMIN [Suspect]
     Indication: MENOPAUSE
  3. SYNTHROID [Concomitant]
     Dosage: 50 ?g, UNK
  4. HYDROCHLOROTHIAZIDE W/TRIAMTERENE [Concomitant]
     Dosage: 3.75/25 mg
  5. ELECTROLYTE SOLUTIONS [Concomitant]

REACTIONS (1)
  - Deep vein thrombosis [None]
